FAERS Safety Report 5886714-5 (Version None)
Quarter: 2008Q3

REPORT INFORMATION
  Report Type: 
  Country: None (occurrence: None)
  Receive Date: 20080917
  Receipt Date: 20080911
  Transmission Date: 20090109
  Serious: Yes (Other)
  Sender: FDA-Public Use
  Company Number: PHEH2008US08178

PATIENT
  Sex: Male

DRUGS (4)
  1. RITALIN LA [Suspect]
     Dosage: 20 MG, QD
     Route: 048
     Dates: start: 20080801
  2. RISPERDAL [Concomitant]
  3. CLONIDINE [Concomitant]
  4. TENEX [Concomitant]

REACTIONS (2)
  - CONVULSION [None]
  - HYPOGLYCAEMIA [None]
